FAERS Safety Report 19819033 (Version 2)
Quarter: 2021Q3

REPORT INFORMATION
  Report Type: Spontaneous
  Country: FR (occurrence: FR)
  Receive Date: 20210912
  Receipt Date: 20210916
  Transmission Date: 20211014
  Serious: No
  Sender: FDA-Public Use
  Company Number: FR-JNJFOC-20210853512

PATIENT

DRUGS (3)
  1. DUROGESIC [Suspect]
     Active Substance: FENTANYL
  2. DUROGESIC [Suspect]
     Active Substance: FENTANYL
  3. DUROGESIC [Suspect]
     Active Substance: FENTANYL
     Indication: PRODUCT USED FOR UNKNOWN INDICATION
     Dosage: UNKNOWN
     Route: 062

REACTIONS (2)
  - Product adhesion issue [Unknown]
  - Incorrect dose administered [Unknown]
